FAERS Safety Report 23647159 (Version 3)
Quarter: 2024Q2

REPORT INFORMATION
  Report Type: Report from Study
  Country: US (occurrence: US)
  Receive Date: 20240319
  Receipt Date: 20240618
  Transmission Date: 20240716
  Serious: Yes (Other)
  Sender: FDA-Public Use
  Company Number: US-MYLANLABS-2023M1084315

PATIENT
  Sex: Female
  Weight: 63.5 kg

DRUGS (3)
  1. GLATIRAMER ACETATE [Suspect]
     Active Substance: GLATIRAMER ACETATE
     Indication: Relapsing-remitting multiple sclerosis
     Dosage: 40 MILLIGRAM, 3XW (THREE TIMES PER WEEK)
     Route: 058
  2. GLATIRAMER ACETATE [Suspect]
     Active Substance: GLATIRAMER ACETATE
     Indication: Multiple sclerosis
     Dosage: 40 MILLIGRAM, QD (THREE TIMES PER WEEK)
     Route: 065
     Dates: start: 202304
  3. GLATIRAMER ACETATE [Suspect]
     Active Substance: GLATIRAMER ACETATE
     Dosage: UNK
     Route: 065
     Dates: end: 202403

REACTIONS (7)
  - Multiple sclerosis [Unknown]
  - Adverse event [Unknown]
  - Dizziness [Unknown]
  - Product dose omission issue [Unknown]
  - Wrong device used [Unknown]
  - Central nervous system lesion [Unknown]
  - Drug ineffective [Unknown]
